FAERS Safety Report 6431342-6 (Version None)
Quarter: 2009Q4

REPORT INFORMATION
  Report Type: 
  Country: None (occurrence: None)
  Receive Date: 20091106
  Receipt Date: 20091027
  Transmission Date: 20100525
  Serious: Yes (Other)
  Sender: FDA-Public Use
  Company Number: BR-ABBOTT-09P-020-0605214-00

PATIENT
  Sex: Female
  Weight: 58.5 kg

DRUGS (4)
  1. HUMIRA [Suspect]
     Indication: CROHN'S DISEASE
     Route: 058
     Dates: start: 20090804
  2. AZATHIOPRINE [Concomitant]
     Indication: CROHN'S DISEASE
     Route: 048
  3. CIPROFLOXACIN [Concomitant]
     Indication: SURGERY
     Route: 048
     Dates: start: 20091013
  4. OMEPRAZOLE [Concomitant]
     Indication: PROPHYLAXIS AGAINST GASTROINTESTINAL ULCER
     Route: 048
     Dates: start: 20091023

REACTIONS (3)
  - ANORECTAL OPERATION [None]
  - INCISIONAL DRAINAGE [None]
  - INJECTION SITE PAIN [None]
